FAERS Safety Report 10032920 (Version 1)
Quarter: 2014Q1

REPORT INFORMATION
  Report Type: Spontaneous
  Country: FR (occurrence: FR)
  Receive Date: 20140324
  Receipt Date: 20140324
  Transmission Date: 20141002
  Serious: Yes (Hospitalization)
  Sender: FDA-Public Use
  Company Number: FR-PFIZER INC-2014077333

PATIENT
  Age: 37 Year
  Sex: Female
  Weight: 73 kg

DRUGS (9)
  1. ZYVOXID [Suspect]
     Indication: TUBERCULOSIS
     Dosage: 600 MG, 1X/DAY
     Route: 048
     Dates: start: 20131113, end: 20140131
  2. IZILOX [Suspect]
     Indication: TUBERCULOSIS
     Dosage: 400 MG, 1X/DAY
     Route: 048
     Dates: start: 20131113, end: 20140131
  3. PASER [Suspect]
     Indication: TUBERCULOSIS
     Dosage: 4 G, 3X/DAY
     Route: 048
     Dates: start: 20131113, end: 20140131
  4. CYCLOSERINE [Suspect]
     Indication: TUBERCULOSIS
     Dosage: 250 MG, DAILY
     Route: 048
     Dates: start: 20131113, end: 20131122
  5. CYCLOSERINE [Suspect]
     Dosage: 500 MG, DAILY
     Route: 048
     Dates: start: 20131123, end: 20140131
  6. ETHIONAMIDE [Concomitant]
     Indication: TUBERCULOSIS
     Dosage: 750 MG, DAILY
     Route: 048
     Dates: start: 20131113, end: 20140131
  7. AMIKACIN [Concomitant]
     Indication: TUBERCULOSIS
     Dosage: 700 MG, DAILY
     Route: 042
     Dates: start: 20131113, end: 20140131
  8. ZOPHREN [Concomitant]
     Dosage: 8 MG, 1X/DAY
     Route: 042
     Dates: start: 20131123, end: 20140131
  9. PRIMPERAN [Concomitant]
     Dosage: 30 MG, DAILY
     Route: 048
     Dates: start: 20131123, end: 20140131

REACTIONS (3)
  - Prothrombin time shortened [Recovered/Resolved]
  - Hepatic failure [Recovered/Resolved]
  - Coagulation factor decreased [Recovered/Resolved]
